FAERS Safety Report 21157637 (Version 1)
Quarter: 2022Q3

REPORT INFORMATION
  Report Type: Spontaneous
  Country: FR (occurrence: FR)
  Receive Date: 20220801
  Receipt Date: 20220801
  Transmission Date: 20221026
  Serious: Yes (Other)
  Sender: FDA-Public Use
  Company Number: None

PATIENT
  Age: 73 Year
  Sex: Male
  Weight: 77 kg

DRUGS (3)
  1. OXALIPLATIN [Suspect]
     Active Substance: OXALIPLATIN
     Indication: Adenocarcinoma of colon
     Dosage: 165 MG, CYCLIC
     Route: 042
     Dates: start: 20220126, end: 20220701
  2. FLUOROURACIL [Concomitant]
     Active Substance: FLUOROURACIL
  3. IRINOTECAN [Concomitant]
     Active Substance: IRINOTECAN

REACTIONS (3)
  - Hypertensive crisis [Recovered/Resolved]
  - Skin lesion [Recovered/Resolved]
  - Hot flush [Recovered/Resolved]

NARRATIVE: CASE EVENT DATE: 20220601
